FAERS Safety Report 15052869 (Version 3)
Quarter: 2018Q3

REPORT INFORMATION
  Report Type: Spontaneous
  Country: US (occurrence: US)
  Receive Date: 20180622
  Receipt Date: 20180803
  Transmission Date: 20181010
  Serious: Yes (Death, Other)
  Sender: FDA-Public Use
  Company Number: US-009507513-1806USA010048

PATIENT
  Age: 45 Year
  Sex: Male

DRUGS (8)
  1. ALBENDAZOLE [Concomitant]
     Active Substance: ALBENDAZOLE
     Indication: STRONGYLOIDIASIS
     Dosage: UNK
     Dates: end: 2016
  2. AMPHOTERICIN B. [Concomitant]
     Active Substance: AMPHOTERICIN B
     Indication: PNEUMOCYSTIS JIROVECII PNEUMONIA
  3. PREDNISONE. [Concomitant]
     Active Substance: PREDNISONE
     Indication: EVIDENCE BASED TREATMENT
     Dosage: 40 MG, Q12H (ALSO REPORTED AS 1 DOSE)
     Dates: start: 2016, end: 2016
  4. AMPHOTERICIN B. [Concomitant]
     Active Substance: AMPHOTERICIN B
     Indication: EVIDENCE BASED TREATMENT
     Dosage: UNK, Q12H
     Dates: start: 2016
  5. SULFAMETHOXAZOLE (+) TRIMETHOPRIM [Concomitant]
     Active Substance: SULFAMETHOXAZOLE\TRIMETHOPRIM
     Indication: PNEUMOCYSTIS JIROVECII PNEUMONIA
  6. STROMECTOL [Suspect]
     Active Substance: IVERMECTIN
     Indication: STRONGYLOIDIASIS
     Dosage: UNK
     Route: 048
     Dates: start: 2016, end: 2016
  7. PREDNISONE. [Concomitant]
     Active Substance: PREDNISONE
     Indication: PNEUMOCYSTIS JIROVECII PNEUMONIA
  8. SULFAMETHOXAZOLE (+) TRIMETHOPRIM [Concomitant]
     Active Substance: SULFAMETHOXAZOLE\TRIMETHOPRIM
     Indication: EVIDENCE BASED TREATMENT
     Dosage: UNK, Q12H
     Dates: start: 2016

REACTIONS (2)
  - Drug ineffective [Fatal]
  - Multiple organ dysfunction syndrome [Unknown]

NARRATIVE: CASE EVENT DATE: 2016
